FAERS Safety Report 18331735 (Version 4)
Quarter: 2022Q1

REPORT INFORMATION
  Report Type: Report from Study
  Country: US (occurrence: None)
  Receive Date: 20200930
  Receipt Date: 20220217
  Transmission Date: 20220424
  Serious: Yes (Hospitalization)
  Sender: FDA-Public Use
  Company Number: US-EISAI MEDICAL RESEARCH-EC-2020-081242

PATIENT
  Age: 72 Year
  Sex: Female

DRUGS (5)
  1. LENVIMA [Suspect]
     Active Substance: LENVATINIB
     Indication: Thyroid cancer
     Route: 048
     Dates: start: 20200917, end: 202009
  2. LENVIMA [Suspect]
     Active Substance: LENVATINIB
     Indication: Metastases to the mediastinum
     Route: 048
     Dates: start: 2020, end: 20201026
  3. LENVIMA [Suspect]
     Active Substance: LENVATINIB
     Route: 048
     Dates: start: 20201027, end: 2021
  4. LENVIMA [Suspect]
     Active Substance: LENVATINIB
     Dosage: PATIENT IS TAKING MEDICATION ON AND OFF FOR COUPLE OF DAYS.
     Route: 048
     Dates: start: 20210227, end: 202109
  5. LENVIMA [Suspect]
     Active Substance: LENVATINIB
     Route: 048
     Dates: start: 20220119

REACTIONS (18)
  - Blood pressure systolic increased [Recovering/Resolving]
  - Headache [Not Recovered/Not Resolved]
  - Stomatitis [Not Recovered/Not Resolved]
  - Fatigue [Not Recovered/Not Resolved]
  - Decreased appetite [Unknown]
  - Peripheral swelling [Not Recovered/Not Resolved]
  - Nasal dryness [Not Recovered/Not Resolved]
  - Blood pressure increased [Not Recovered/Not Resolved]
  - Nausea [Recovering/Resolving]
  - Memory impairment [Unknown]
  - Food aversion [Unknown]
  - Taste disorder [Not Recovered/Not Resolved]
  - Weight decreased [Not Recovered/Not Resolved]
  - Ageusia [Unknown]
  - Abdominal pain upper [Recovering/Resolving]
  - Asthenia [Recovering/Resolving]
  - Pain in extremity [Not Recovered/Not Resolved]
  - Protein urine present [Recovering/Resolving]

NARRATIVE: CASE EVENT DATE: 20200101
